FAERS Safety Report 6872163-X (Version None)
Quarter: 2010Q3

REPORT INFORMATION
  Report Type: 
  Country: None (occurrence: None)
  Receive Date: 20100723
  Receipt Date: 20100712
  Transmission Date: 20110219
  Serious: Yes (Hospitalization)
  Sender: FDA-Public Use
  Company Number: IT-ELI_LILLY_AND_COMPANY-IT201006006025

PATIENT
  Sex: Female

DRUGS (7)
  1. ALIMTA [Suspect]
     Indication: LUNG ADENOCARCINOMA
     Dosage: 782 MG/M2, BODY SURFACE AREA/CYCLE
     Dates: start: 20091017, end: 20100115
  2. ALIMTA [Suspect]
     Dosage: 782 MG/M2, BODY SURFACE AREA/CYCLE
     Dates: start: 20100201, end: 20100514
  3. CISPLATIN [Concomitant]
     Indication: LUNG ADENOCARCINOMA
     Dosage: 117 MG, UNK
     Dates: start: 20091017, end: 20100115
  4. ANTIHYPERTENSIVES [Concomitant]
     Indication: HYPERTENSION
  5. FOLIC ACID [Concomitant]
     Route: 048
  6. VITAMIN B-12 [Concomitant]
  7. DEXAMETHASONE [Concomitant]

REACTIONS (1)
  - CAROTID ARTERY THROMBOSIS [None]
